FAERS Safety Report 17739960 (Version 1)
Quarter: 2020Q2

REPORT INFORMATION
  Report Type: Spontaneous
  Country: US (occurrence: US)
  Receive Date: 20200504
  Receipt Date: 20200504
  Transmission Date: 20200714
  Serious: No
  Sender: FDA-Public Use
  Company Number: US-EMCURE PHARMACEUTICALS LTD-2020-EPL-000515

PATIENT

DRUGS (1)
  1. TETRACYCLINE HYDROCHLORIDE. [Suspect]
     Active Substance: TETRACYCLINE HYDROCHLORIDE
     Indication: HELICOBACTER INFECTION
     Dosage: 500 MILLIGRAM, QID
     Dates: start: 20200313, end: 20200314

REACTIONS (5)
  - Malaise [Unknown]
  - Vomiting [Recovered/Resolved]
  - Off label use [Unknown]
  - Dyspepsia [Unknown]
  - Diarrhoea [Not Recovered/Not Resolved]

NARRATIVE: CASE EVENT DATE: 20200313
